FAERS Safety Report 17584727 (Version 1)
Quarter: 2020Q1

REPORT INFORMATION
  Report Type: Spontaneous
  Country: IT (occurrence: IT)
  Receive Date: 20200326
  Receipt Date: 20200326
  Transmission Date: 20200409
  Serious: Yes (Other)
  Sender: FDA-Public Use
  Company Number: IT-PFIZER INC-2020036064

PATIENT
  Age: 66 Year
  Sex: Male
  Weight: 100 kg

DRUGS (2)
  1. LANSOPRAZOLE. [Concomitant]
     Active Substance: LANSOPRAZOLE
     Indication: GASTROOESOPHAGEAL REFLUX DISEASE
     Dosage: 15 MG, UNK
  2. NORVASC [Suspect]
     Active Substance: AMLODIPINE BESYLATE
     Indication: HYPERTENSION
     Dosage: 5 MG, 1X/DAY
     Route: 048
     Dates: start: 20180511, end: 20190901

REACTIONS (7)
  - Visual impairment [Recovering/Resolving]
  - Arthralgia [Recovering/Resolving]
  - Hypertriglyceridaemia [Not Recovered/Not Resolved]
  - Fatigue [Recovering/Resolving]
  - Tetany [Recovering/Resolving]
  - Muscle spasms [Recovered/Resolved]
  - Diplopia [Recovering/Resolving]

NARRATIVE: CASE EVENT DATE: 20190304
